FAERS Safety Report 6564028-8 (Version None)
Quarter: 2010Q1

REPORT INFORMATION
  Report Type: 
  Country: None (occurrence: None)
  Receive Date: 20100131
  Receipt Date: 20100104
  Transmission Date: 20100710
  Serious: Yes (Other)
  Sender: FDA-Public Use
  Company Number: US-ALLERGAN-0914484US

PATIENT
  Age: 57 Year
  Sex: Male
  Weight: 92.517 kg

DRUGS (2)
  1. BOTOX [Suspect]
     Indication: TENSION HEADACHE
     Dosage: UNK
     Route: 030
     Dates: start: 20030101, end: 20030101
  2. BOTOX [Suspect]
     Indication: NECK PAIN

REACTIONS (2)
  - DRUG INEFFECTIVE [None]
  - MUSCULAR WEAKNESS [None]
